FAERS Safety Report 16229013 (Version 1)
Quarter: 2019Q2

REPORT INFORMATION
  Report Type: Spontaneous
  Country: US (occurrence: US)
  Receive Date: 20190319
  Receipt Date: 20190319
  Transmission Date: 20190711
  Serious: Yes (Death)
  Sender: FDA-Public Use
  Company Number: None

PATIENT
  Age: 74 Year
  Sex: Female
  Weight: 64 kg

DRUGS (17)
  1. IPILIMUMAB [Suspect]
     Active Substance: IPILIMUMAB
     Indication: SMALL CELL LUNG CANCER
     Route: 042
     Dates: start: 20190222, end: 20190315
  2. ESOMEPRAZOLE. [Concomitant]
     Active Substance: ESOMEPRAZOLE MAGNESIUM
  3. MYRBETRIQ [Concomitant]
     Active Substance: MIRABEGRON
  4. RIVAROXABAN [Concomitant]
     Active Substance: RIVAROXABAN
  5. NIVOLUMAB [Suspect]
     Active Substance: NIVOLUMAB
     Indication: SMALL CELL LUNG CANCER
     Dosage: ?          OTHER FREQUENCY:EVERY3WKS;?
     Route: 042
     Dates: start: 20190222, end: 20190315
  6. ATORVASTATIN [Concomitant]
     Active Substance: ATORVASTATIN
  7. AMITRIPTYLINE [Concomitant]
     Active Substance: AMITRIPTYLINE
  8. DRONABINOL. [Concomitant]
     Active Substance: DRONABINOL
  9. PREDNISONE. [Concomitant]
     Active Substance: PREDNISONE
  10. FUROSEMIDE. [Concomitant]
     Active Substance: FUROSEMIDE
  11. ALPRAZOLAM. [Concomitant]
     Active Substance: ALPRAZOLAM
  12. METFORMIN [Concomitant]
     Active Substance: METFORMIN HYDROCHLORIDE
  13. LABETALOL [Concomitant]
     Active Substance: LABETALOL\LABETALOL HYDROCHLORIDE
  14. MONTELUKAST [Concomitant]
     Active Substance: MONTELUKAST SODIUM
  15. RISEDRONATE [Concomitant]
     Active Substance: RISEDRONATE SODIUM
  16. LEXAPRO [Concomitant]
     Active Substance: ESCITALOPRAM OXALATE
  17. MAGNESIUM OXIDE. [Concomitant]
     Active Substance: MAGNESIUM OXIDE

REACTIONS (3)
  - Choking sensation [None]
  - Retching [None]
  - Cardiac arrest [None]

NARRATIVE: CASE EVENT DATE: 20190318
